FAERS Safety Report 5209495-7 (Version None)
Quarter: 2007Q1

REPORT INFORMATION
  Report Type: 
  Country: None (occurrence: None)
  Receive Date: 20070116
  Receipt Date: 20070104
  Transmission Date: 20070707
  Serious: Yes (Hospitalization, Other)
  Sender: FDA-Public Use
  Company Number: US-PFIZER INC-2007002845

PATIENT
  Sex: Male
  Weight: 68 kg

DRUGS (10)
  1. NEURONTIN [Suspect]
     Indication: BACK PAIN
  2. NEURONTIN [Suspect]
     Indication: GROIN PAIN
  3. LYRICA [Suspect]
     Indication: NEUROPATHY PERIPHERAL
  4. LAMICTAL [Suspect]
     Indication: DRUG USE FOR UNKNOWN INDICATION
     Dates: start: 20061201, end: 20061201
  5. LIDOCAINE [Concomitant]
     Route: 061
  6. CLONAZEPAM [Concomitant]
  7. KETOPROFEN [Concomitant]
     Route: 061
  8. LISINOPRIL [Concomitant]
  9. ACTOS [Concomitant]
  10. BISOPROLOL FUMARATE [Concomitant]

REACTIONS (3)
  - ARTERIOSCLEROSIS CORONARY ARTERY [None]
  - DIABETES MELLITUS [None]
  - NEUROLOGICAL EXAMINATION ABNORMAL [None]
